FAERS Safety Report 8872836 (Version 3)
Quarter: 2012Q4

REPORT INFORMATION
  Report Type: 
  Country: JP (occurrence: JP)
  Receive Date: 20121030
  Receipt Date: 20121224
  Transmission Date: 20130627
  Serious: Yes (Hospitalization)
  Sender: FDA-Public Use
  Company Number: JP-MERCK-1210JPN013026

PATIENT
  Age: 34 Year
  Sex: Female
  Weight: 53.2 kg

DRUGS (8)
  1. PEPCID [Suspect]
     Indication: NEURILEMMOMA
     Dosage: 20 mg, bid
     Route: 048
     Dates: start: 20120628, end: 20120706
  2. CELECOX [Suspect]
     Indication: NEURILEMMOMA
     Dosage: 100 mg, bid
     Route: 048
     Dates: start: 20120625, end: 20120707
  3. MERISLON [Concomitant]
     Indication: NEURILEMMOMA
     Dosage: UNK
     Dates: start: 20120625, end: 20120706
  4. METHYCOBAL [Concomitant]
     Indication: NEURILEMMOMA
     Dosage: UNK
     Route: 048
     Dates: start: 20120625
  5. PREDONINE [Concomitant]
     Indication: NEURILEMMOMA
     Dosage: UNK
     Route: 048
     Dates: end: 20120708
  6. PREDONINE [Concomitant]
     Dosage: UNK
     Dates: start: 20120628
  7. ULTIVA [Concomitant]
     Dosage: UNK
     Dates: start: 20120621, end: 20120621
  8. PROPOFOL [Concomitant]
     Dosage: UNK
     Dates: start: 20120621, end: 20120621

REACTIONS (2)
  - Drug eruption [Recovering/Resolving]
  - Intentional drug misuse [Unknown]
